FAERS Safety Report 18208311 (Version 1)
Quarter: 2020Q3

REPORT INFORMATION
  Report Type: Spontaneous
  Country: US (occurrence: US)
  Receive Date: 20200828
  Receipt Date: 20200828
  Transmission Date: 20201103
  Serious: Yes (Hospitalization)
  Sender: FDA-Public Use
  Company Number: US-SA-2020SA226434

PATIENT

DRUGS (1)
  1. SARCLISA [Suspect]
     Active Substance: ISATUXIMAB-IRFC
     Dosage: 10 MG/KG
     Route: 042
     Dates: start: 20200817

REACTIONS (2)
  - Dyspnoea [Recovering/Resolving]
  - Chills [Recovering/Resolving]
